FAERS Safety Report 11672688 (Version 1)
Quarter: 2015Q4

REPORT INFORMATION
  Report Type: Spontaneous
  Country: US (occurrence: None)
  Receive Date: 20151026
  Receipt Date: 20151026
  Transmission Date: 20160304
  Serious: Yes (Hospitalization)
  Sender: FDA-Public Use
  Company Number: None

PATIENT
  Age: 56 Year
  Sex: Male
  Weight: 88.7 kg

DRUGS (1)
  1. FLUDEOXYGLUCOSE F 18 [Suspect]
     Active Substance: FLUDEOXYGLUCOSE F-18
     Indication: SMALL CELL LUNG CANCER
     Dates: start: 20151023, end: 20151023

REACTIONS (4)
  - Computerised tomogram thorax abnormal [None]
  - Dyspnoea [None]
  - Wheezing [None]
  - Cough [None]

NARRATIVE: CASE EVENT DATE: 20151023
